FAERS Safety Report 23034197 (Version 1)
Quarter: 2023Q4

REPORT INFORMATION
  Report Type: Report from Study
  Country: SE (occurrence: NO)
  Receive Date: 20231005
  Receipt Date: 20231005
  Transmission Date: 20240110
  Serious: Yes (Life-Threatening, Hospitalization, Other)
  Sender: FDA-Public Use
  Company Number: SE-ASTELLAS-2023US021498

PATIENT
  Age: 61 Year
  Sex: Female

DRUGS (1)
  1. TACROLIMUS [Suspect]
     Active Substance: TACROLIMUS
     Indication: Product used for unknown indication
     Dosage: UNK UNK, UNKNOWN FREQ.
     Route: 065
     Dates: start: 20190901

REACTIONS (14)
  - Bacterial infection [Recovered/Resolved]
  - Malnutrition [Recovered/Resolved]
  - Condition aggravated [Recovered/Resolved]
  - Delirium [Recovered/Resolved]
  - Bacterial infection [Recovered/Resolved]
  - Renal impairment [Not Recovered/Not Resolved]
  - Type 2 diabetes mellitus [Not Recovered/Not Resolved]
  - Bacterial infection [Recovered/Resolved]
  - Vulvar dysplasia [Not Recovered/Not Resolved]
  - Bacterial infection [Recovered/Resolved]
  - Bacterial infection [Recovered/Resolved]
  - Bacterial infection [Recovered/Resolved]
  - Bacterial infection [Recovered/Resolved]
  - Neoplasm malignant [Not Recovered/Not Resolved]

NARRATIVE: CASE EVENT DATE: 20190906
